FAERS Safety Report 5713126-7 (Version None)
Quarter: 2008Q2

REPORT INFORMATION
  Report Type: 
  Country: None (occurrence: None)
  Receive Date: 20080422
  Receipt Date: 20070801
  Transmission Date: 20081010
  Serious: No
  Sender: FDA-Public Use
  Company Number: US-BRISTOL-MYERS SQUIBB COMPANY-13865332

PATIENT
  Age: 79 Year
  Sex: Male
  Weight: 85 kg

DRUGS (2)
  1. HYDREA [Suspect]
     Indication: POLYCYTHAEMIA VERA
     Route: 048
  2. VICODIN [Concomitant]

REACTIONS (1)
  - BACK PAIN [None]
